FAERS Safety Report 6894165-X (Version None)
Quarter: 2010Q3

REPORT INFORMATION
  Report Type: 
  Country: None (occurrence: None)
  Receive Date: 20100802
  Receipt Date: 20100719
  Transmission Date: 20110219
  Serious: Yes (Other)
  Sender: FDA-Public Use
  Company Number: NL-RANBAXY-2010RR-36411

PATIENT
  Age: 75 Year
  Sex: Male

DRUGS (8)
  1. ATORVASTATIN [Suspect]
     Dosage: 1200 MG, UNK
     Route: 048
  2. DIGOXIN [Suspect]
     Dosage: 7125 MG, UNK
     Route: 048
  3. SOTALOL HCL [Suspect]
     Dosage: 7200 MG, UNK
     Route: 048
  4. ISOSORBIDE [Suspect]
     Dosage: 6000 MG, UNK
     Route: 048
  5. ACENOCOUMAROL [Suspect]
     Dosage: 98 MG, UNK
     Route: 048
  6. PERINDOPRIL [Suspect]
     Dosage: 200 MG, UNK
     Route: 048
  7. FUROSEMIDE [Suspect]
     Dosage: 800 MG, UNK
     Route: 048
  8. AMLODIPINE [Suspect]
     Dosage: 300 MG, UNK
     Route: 048

REACTIONS (4)
  - CARDIOGENIC SHOCK [None]
  - DRUG INTERACTION [None]
  - OVERDOSE [None]
  - RENAL FAILURE [None]
